FAERS Safety Report 20746457 (Version 23)
Quarter: 2025Q3

REPORT INFORMATION
  Report Type: Spontaneous
  Country: US (occurrence: US)
  Receive Date: 20220425
  Receipt Date: 20250805
  Transmission Date: 20251021
  Serious: No
  Sender: PFIZER
  Company Number: US-PFIZER INC-2019177699

PATIENT
  Age: 58 Year
  Sex: Male

DRUGS (39)
  1. SOMAVERT [Suspect]
     Active Substance: PEGVISOMANT
     Indication: Acromegaly
     Dates: start: 20171103
  2. SOMAVERT [Suspect]
     Active Substance: PEGVISOMANT
     Indication: Gigantism
     Dosage: 20 MG, DAILY
     Route: 058
     Dates: start: 20181130
  3. SOMAVERT [Suspect]
     Active Substance: PEGVISOMANT
     Dosage: 20 MG, ALTERNATE DAY (EVERY OTHER DAY)
     Route: 058
  4. SOMAVERT [Suspect]
     Active Substance: PEGVISOMANT
     Dosage: 30 MG, 2X/WEEK
     Route: 058
     Dates: start: 20220203
  5. SOMAVERT [Suspect]
     Active Substance: PEGVISOMANT
     Route: 058
     Dates: start: 20220203
  6. SOMAVERT [Suspect]
     Active Substance: PEGVISOMANT
     Route: 058
     Dates: start: 20220203
  7. SOMAVERT [Suspect]
     Active Substance: PEGVISOMANT
     Route: 058
     Dates: start: 20220203
  8. SOMAVERT [Suspect]
     Active Substance: PEGVISOMANT
     Route: 058
  9. ACETAMINOPHEN [Concomitant]
     Active Substance: ACETAMINOPHEN
  10. AMLODIPINE [Concomitant]
     Active Substance: AMLODIPINE BESYLATE
  11. AMLODIPINE [Concomitant]
     Active Substance: AMLODIPINE BESYLATE
  12. BASAGLAR [Concomitant]
     Active Substance: INSULIN GLARGINE
  13. CARVEDILOL [Concomitant]
     Active Substance: CARVEDILOL
  14. CETIRIZINE [Concomitant]
     Active Substance: CETIRIZINE HYDROCHLORIDE
  15. CIALIS [Concomitant]
     Active Substance: TADALAFIL
  16. COENZYME Q10 [Concomitant]
     Active Substance: DIETARY SUPPLEMENT\UBIDECARENONE
  17. EZETIMIBE [Concomitant]
     Active Substance: EZETIMIBE
  18. FINASTERIDE [Concomitant]
     Active Substance: FINASTERIDE
  19. HUMALOG JUNIOR KWIKPEN [Concomitant]
     Active Substance: INSULIN LISPRO
  20. HYDROCHLOROTHIAZIDE [Concomitant]
     Active Substance: HYDROCHLOROTHIAZIDE
  21. JARDIANCE [Concomitant]
     Active Substance: EMPAGLIFLOZIN
  22. LEVEMIR [Concomitant]
     Active Substance: INSULIN DETEMIR
  23. LEVOTHYROXINE [Concomitant]
     Active Substance: LEVOTHYROXINE
  24. LEVOTHYROXINE [Concomitant]
     Active Substance: LEVOTHYROXINE
  25. LEVOTHYROXINE [Concomitant]
     Active Substance: LEVOTHYROXINE
  26. LISINOPRIL [Concomitant]
     Active Substance: LISINOPRIL
  27. LISINOPRIL [Concomitant]
     Active Substance: LISINOPRIL
  28. MELATONIN [Concomitant]
     Active Substance: MELATONIN
  29. METFORMIN HYDROCHLORIDE [Concomitant]
     Active Substance: METFORMIN HYDROCHLORIDE
  30. NOVOLOG [Concomitant]
     Active Substance: INSULIN ASPART
  31. OCTREOTIDE [Concomitant]
     Active Substance: OCTREOTIDE
  32. BIFIDOBACTERIUM ANIMALIS LACTIS [Concomitant]
     Active Substance: BIFIDOBACTERIUM ANIMALIS LACTIS
  33. SANDOSTATIN LAR DEPOT [Concomitant]
     Active Substance: OCTREOTIDE ACETATE
  34. SPIRONOLACTONE [Concomitant]
     Active Substance: SPIRONOLACTONE
  35. TESTOSTERONE CYPIONATE [Concomitant]
     Active Substance: TESTOSTERONE CYPIONATE
  36. VENLAFAXINE [Concomitant]
     Active Substance: VENLAFAXINE HYDROCHLORIDE
  37. VICTOZA [Concomitant]
     Active Substance: LIRAGLUTIDE
  38. VITAMIN D3 [Concomitant]
     Active Substance: CHOLECALCIFEROL
  39. XARELTO [Concomitant]
     Active Substance: RIVAROXABAN

REACTIONS (5)
  - Chronic sinusitis [Unknown]
  - COVID-19 [Not Recovered/Not Resolved]
  - Off label use [Unknown]
  - Product dose omission issue [Unknown]
  - Product dose omission in error [Unknown]

NARRATIVE: CASE EVENT DATE: 20220227
